FAERS Safety Report 6277858-7 (Version None)
Quarter: 2009Q3

REPORT INFORMATION
  Report Type: 
  Country: None (occurrence: None)
  Receive Date: 20090717
  Receipt Date: 20090717
  Transmission Date: 20100115
  Serious: Yes (Other)
  Sender: FDA-Public Use
  Company Number: None

PATIENT

DRUGS (1)
  1. CYMBALTA [Suspect]
     Indication: DEPRESSION
     Dosage: 30MG 1 TIMES DAY PO
     Route: 048
     Dates: start: 20060101, end: 20090708

REACTIONS (10)
  - ACTIVITIES OF DAILY LIVING IMPAIRED [None]
  - DIZZINESS [None]
  - DRUG WITHDRAWAL SYNDROME [None]
  - FATIGUE [None]
  - IMPAIRED WORK ABILITY [None]
  - MALAISE [None]
  - MIGRAINE [None]
  - NAUSEA [None]
  - PARAESTHESIA [None]
  - SEXUAL DYSFUNCTION [None]
